FAERS Safety Report 7062191-6 (Version None)
Quarter: 2010Q4

REPORT INFORMATION
  Report Type: 
  Country: None (occurrence: None)
  Receive Date: 20101026
  Receipt Date: 20101021
  Transmission Date: 20110411
  Serious: Yes (Other)
  Sender: FDA-Public Use
  Company Number: US-ROXANE LABORATORIES, INC.-2010-RO-01409RO

PATIENT
  Age: 12 Year
  Sex: Male

DRUGS (9)
  1. CYCLOPHOSPHAMIDE [Suspect]
     Indication: MEDULLOBLASTOMA
  2. CISPLATIN [Suspect]
     Indication: MEDULLOBLASTOMA
  3. ETOPOSIDE [Suspect]
     Indication: MEDULLOBLASTOMA
  4. VINCRISTINE [Suspect]
     Indication: MEDULLOBLASTOMA
  5. LEVOXYL [Concomitant]
  6. CALCIUM [Concomitant]
  7. VITAMIN D [Concomitant]
  8. GROWTH HORMONE INJECTIONS [Concomitant]
  9. BISPHOSPHONATE [Concomitant]
     Route: 048

REACTIONS (15)
  - ALOPECIA [None]
  - BLOOD TESTOSTERONE DECREASED [None]
  - BODY HEIGHT BELOW NORMAL [None]
  - CATARACT [None]
  - COGNITIVE DISORDER [None]
  - DEAFNESS BILATERAL [None]
  - DEPRESSION [None]
  - GROWTH HORMONE DEFICIENCY [None]
  - HYPOTHYROIDISM [None]
  - INFERTILITY [None]
  - MELANOCYTIC NAEVUS [None]
  - NECK DEFORMITY [None]
  - NEPHROPATHY TOXIC [None]
  - OSTEOPENIA [None]
  - THYROID CANCER [None]
